FAERS Safety Report 5825488 (Version 6)
Quarter: 2013Q1

REPORT INFORMATION
  Report Type: Spontaneous
  Country: JP (occurrence: JP)
  Receive Date: 20050624
  Receipt Date: 20130104
  Transmission Date: 20140127
  Serious: Yes (Hospitalization, Other)
  Sender: FDA-Public Use
  Company Number: JP-ABBOTT-03P-087-0212201-00

PATIENT
  Age: 28 Year
  Sex: Male

DRUGS (23)
  1. KALETRA SOFT GELATIN CAPSULES [Suspect]
     Indication: HIV INFECTION
     Route: 048
     Dates: start: 20020123, end: 20040309
  2. KALETRA TABLETS 200MG/50MG [Suspect]
     Indication: HIV INFECTION
     Route: 048
     Dates: start: 20070507, end: 20081111
  3. NORVIR SOFT GELATIN CAPSULES [Suspect]
     Indication: HIV INFECTION
     Route: 048
     Dates: start: 20060104, end: 20070427
  4. NORVIR SOFT GELATIN CAPSULES [Suspect]
     Dosage: 200 MILLIGRAM
     Dates: start: 20081112, end: 20110525
  5. NORVIR SOFT GELATIN CAPSULES [Suspect]
     Dosage: 200 MILLIGRAM
     Route: 048
     Dates: start: 20110526
  6. STAVUDINE [Suspect]
     Indication: HIV INFECTION
     Route: 048
     Dates: start: 20020123, end: 20060103
  7. STAVUDINE [Suspect]
     Route: 048
     Dates: start: 20010401, end: 20021022
  8. STAVUDINE [Suspect]
     Route: 048
     Dates: start: 20070507, end: 20081111
  9. DIDANOSINE [Suspect]
     Indication: HIV INFECTION
     Route: 048
     Dates: start: 20010801, end: 20020123
  10. EFAVIRENZ [Suspect]
     Indication: HIV INFECTION
     Route: 048
     Dates: start: 20010801, end: 20020123
  11. LAMIVUDINE [Suspect]
     Indication: HIV INFECTION
     Route: 048
     Dates: start: 20020123, end: 20060103
  12. LAMIVUDINE [Suspect]
     Route: 048
     Dates: start: 20010401, end: 20010801
  13. LAMIVUDINE [Suspect]
     Route: 048
     Dates: start: 20070507, end: 20081111
  14. ATAZANAVIR [Suspect]
     Indication: HIV INFECTION
     Route: 048
     Dates: start: 20040310, end: 20060103
  15. ATAZANAVIR [Suspect]
     Route: 048
     Dates: start: 20060104, end: 20070427
  16. EFAVIRENZ/EMTRICITABIN/TENOFOVIR DISOPROX FUM [Suspect]
     Indication: HIV INFECTION
     Route: 048
     Dates: start: 20060104, end: 20070427
  17. EFAVIRENZ/EMTRICITABIN/TENOFOVIR DISOPROX FUM [Suspect]
     Route: 048
     Dates: start: 20081112
  18. FACTOR VIII (ANTIHAEMOPHILIC FACTOR) [Concomitant]
     Indication: FACTOR VIII DEFICIENCY
     Dosage: 6-10 TIMES/MONTH
     Route: 042
     Dates: start: 20010401
  19. FACTOR VIII (ANTIHAEMOPHILIC FACTOR) [Concomitant]
     Indication: FACTOR VIII DEFICIENCY
  20. NELFINAVIR [Concomitant]
     Indication: HIV INFECTION
     Route: 048
     Dates: start: 20010401, end: 20010801
  21. ZIDOVUDINE [Concomitant]
     Indication: HIV INFECTION
     Route: 048
     Dates: start: 20011022, end: 20020123
  22. FOSAMPRENAVIR CALCIUM HYDRATE [Concomitant]
     Indication: HIV INFECTION
     Route: 048
     Dates: start: 20081112
  23. ANTI-HEMOPHILIC GLOBULIN [Concomitant]
     Indication: PRODUCT USED FOR UNKNOWN INDICATION
     Dates: start: 20010401

REACTIONS (2)
  - Hepatitis C [Not Recovered/Not Resolved]
  - Hyperglycaemia [Not Recovered/Not Resolved]
